FAERS Safety Report 6129224-2 (Version None)
Quarter: 2009Q1

REPORT INFORMATION
  Report Type: 
  Country: None (occurrence: None)
  Receive Date: 20090324
  Receipt Date: 20090212
  Transmission Date: 20090719
  Serious: No
  Sender: FDA-Public Use
  Company Number: US-BAYER-200913353NA

PATIENT
  Age: 23 Year
  Sex: Female

DRUGS (1)
  1. MIRENA [Suspect]
     Indication: DRUG USE FOR UNKNOWN INDICATION
     Dosage: CONTINUOUS
     Route: 015
     Dates: start: 20080617, end: 20090204

REACTIONS (3)
  - ABDOMINAL PAIN LOWER [None]
  - GENITAL HAEMORRHAGE [None]
  - INTRA-UTERINE CONTRACEPTIVE DEVICE EXPELLED [None]
